FAERS Safety Report 5951034-7 (Version None)
Quarter: 2008Q4

REPORT INFORMATION
  Report Type: 
  Country: None (occurrence: None)
  Receive Date: 20081110
  Receipt Date: 20081013
  Transmission Date: 20090506
  Serious: No
  Sender: FDA-Public Use
  Company Number: 20085746

PATIENT
  Sex: Female

DRUGS (4)
  1. LIORESAL [Suspect]
     Indication: MUSCLE SPASTICITY
     Dosage: MCG, DAILY, INTRATHECAL
     Route: 037
  2. DILAUDID [Concomitant]
  3. BUPIVACAINE [Concomitant]
  4. CLONIDINE [Concomitant]

REACTIONS (9)
  - CATHETER SITE RELATED REACTION [None]
  - DRUG INEFFECTIVE [None]
  - HAEMATOMA [None]
  - INTRACRANIAL HYPOTENSION [None]
  - OEDEMA [None]
  - PAIN [None]
  - SEROMA [None]
  - SWELLING [None]
  - THERAPEUTIC RESPONSE UNEXPECTED [None]
